FAERS Safety Report 11592468 (Version 2)
Quarter: 2015Q4

REPORT INFORMATION
  Report Type: Spontaneous
  Country: US (occurrence: US)
  Receive Date: 20151005
  Receipt Date: 20151030
  Transmission Date: 20160304
  Serious: No
  Sender: FDA-Public Use
  Company Number: US-ASTRAZENECA-2015SE92335

PATIENT
  Age: 54 Year
  Sex: Female
  Weight: 68 kg

DRUGS (9)
  1. VITAMIN D3 [Concomitant]
     Active Substance: CHOLECALCIFEROL
     Indication: BONE DISORDER
     Route: 048
     Dates: start: 2005
  2. PRILOSEC [Suspect]
     Active Substance: OMEPRAZOLE MAGNESIUM
     Indication: GASTROOESOPHAGEAL REFLUX DISEASE
     Route: 048
     Dates: end: 2005
  3. PRILOSEC [Suspect]
     Active Substance: OMEPRAZOLE MAGNESIUM
     Indication: GASTROOESOPHAGEAL REFLUX DISEASE
     Route: 048
     Dates: start: 2005
  4. PRILOSEC [Suspect]
     Active Substance: OMEPRAZOLE MAGNESIUM
     Indication: GASTROOESOPHAGEAL REFLUX DISEASE
     Route: 048
     Dates: start: 2000
  5. CALCIUM [Concomitant]
     Active Substance: CALCIUM
     Indication: BONE DENSITY DECREASED
     Route: 048
     Dates: start: 2005
  6. PRILOSEC [Suspect]
     Active Substance: OMEPRAZOLE MAGNESIUM
     Indication: GASTROOESOPHAGEAL REFLUX DISEASE
     Dosage: OMEPRAZOLE, 40 MG DAILY
     Route: 048
     Dates: start: 2005, end: 2005
  7. FISH OIL [Concomitant]
     Active Substance: FISH OIL
     Indication: ROUTINE HEALTH MAINTENANCE
     Route: 048
     Dates: start: 2005
  8. VITAMIN D3 [Concomitant]
     Active Substance: CHOLECALCIFEROL
     Indication: BONE DISORDER
     Route: 048
     Dates: start: 2005
  9. COQ10 [Concomitant]
     Active Substance: UBIDECARENONE
     Indication: CARDIAC DISORDER
     Route: 048
     Dates: start: 2005

REACTIONS (6)
  - Gastrooesophageal reflux disease [Not Recovered/Not Resolved]
  - Intentional product use issue [Unknown]
  - Osteopenia [Unknown]
  - Drug ineffective [Unknown]
  - Anxiety [Unknown]
  - Drug dose omission [Unknown]

NARRATIVE: CASE EVENT DATE: 2005
